FAERS Safety Report 7474822-7 (Version None)
Quarter: 2011Q2

REPORT INFORMATION
  Report Type: 
  Country: None (occurrence: None)
  Receive Date: 20110512
  Receipt Date: 20110408
  Transmission Date: 20111010
  Serious: Yes (Hospitalization, Other)
  Sender: FDA-Public Use
  Company Number: US-BAYER-200935820NA

PATIENT
  Age: 43 Year
  Sex: Female
  Weight: 73 kg

DRUGS (11)
  1. COZAAR [Concomitant]
     Dosage: 50 MG, QD
     Route: 048
  2. CELLCEPT [Concomitant]
     Dosage: 500 MG, BID
     Route: 048
  3. NSAID'S [Concomitant]
  4. PROTONIX [Concomitant]
     Dosage: 40 MG, QD
     Route: 048
  5. XANAX [Concomitant]
     Dosage: 0.5 MG, QID
     Route: 048
  6. YASMIN [Suspect]
     Indication: PRODUCT USED FOR UNKNOWN INDICATION
     Dosage: UNK
     Dates: start: 20021206, end: 20071010
  7. YAZ [Suspect]
     Indication: PRODUCT USED FOR UNKNOWN INDICATION
     Dosage: UNK
     Dates: start: 20021206, end: 20071010
  8. PREDNISONE [Concomitant]
     Dosage: 30 MG, QD
     Route: 048
  9. LASIX [Concomitant]
     Dosage: 20 MG, QD
     Route: 048
  10. POTASSIUM [POTASSIUM] [Concomitant]
     Dosage: 10 MEQ, QD
     Route: 048
  11. LOSARTAN [Concomitant]
     Dosage: UNK
     Dates: start: 20070101

REACTIONS (3)
  - SYSTEMIC LUPUS ERYTHEMATOSUS [None]
  - PULMONARY EMBOLISM [None]
  - DEEP VEIN THROMBOSIS [None]
